FAERS Safety Report 11807605 (Version 1)
Quarter: 2015Q4

REPORT INFORMATION
  Report Type: Spontaneous
  Country: US (occurrence: US)
  Receive Date: 20151207
  Receipt Date: 20151207
  Transmission Date: 20160305
  Serious: No
  Sender: FDA-Public Use
  Company Number: US-FRI-1000072543

PATIENT
  Age: 57 Year
  Sex: Female

DRUGS (16)
  1. ACETAMINOPHEN. [Concomitant]
     Active Substance: ACETAMINOPHEN
  2. XANAX [Concomitant]
     Active Substance: ALPRAZOLAM
  3. DILAUDID [Concomitant]
     Active Substance: HYDROMORPHONE HYDROCHLORIDE
  4. INSULIN [Concomitant]
     Active Substance: INSULIN NOS
  5. PREVACID [Concomitant]
     Active Substance: LANSOPRAZOLE
  6. TEFLARO [Suspect]
     Active Substance: CEFTAROLINE FOSAMIL
     Indication: STAPHYLOCOCCAL BACTERAEMIA
     Dosage: 1800 MG
     Route: 042
     Dates: start: 20141029
  7. PLAVIX [Concomitant]
     Active Substance: CLOPIDOGREL BISULFATE
  8. HEPARIN [Concomitant]
     Active Substance: HEPARIN SODIUM
  9. CALCIUM ACETATE. [Concomitant]
     Active Substance: CALCIUM ACETATE
  10. FOLIC ACID. [Concomitant]
     Active Substance: FOLIC ACID
  11. NOREPINEPHRINE [Concomitant]
     Active Substance: NOREPINEPHRINE\NOREPINEPHRINE BITARTRATE
  12. OXYCODONE [Concomitant]
     Active Substance: OXYCODONE
  13. FENTANYL. [Concomitant]
     Active Substance: FENTANYL
  14. IRON [Concomitant]
     Active Substance: IRON
  15. ALBUTEROL. [Concomitant]
     Active Substance: ALBUTEROL
  16. MIDAZOLAM [Concomitant]
     Active Substance: MIDAZOLAM\MIDAZOLAM HYDROCHLORIDE

REACTIONS (1)
  - Skin discolouration [Not Recovered/Not Resolved]

NARRATIVE: CASE EVENT DATE: 201411
